FAERS Safety Report 4441801-3 (Version None)
Quarter: 2004Q3

REPORT INFORMATION
  Report Type: 
  Country: None (occurrence: None)
  Receive Date: 20040901
  Receipt Date: 20040824
  Transmission Date: 20050211
  Serious: Yes (Life-Threatening)
  Sender: FDA-Public Use
  Company Number: 2004SE04745

PATIENT
  Age: 21 Year
  Sex: Female

DRUGS (8)
  1. BLOPRESS [Suspect]
     Indication: HYPERTENSION
     Dosage: 2 MG QD PO
     Route: 048
     Dates: start: 20040802
  2. OMEPRAL [Suspect]
  3. 8-HOUR BAYER [Suspect]
     Dosage: 100 MG DAILY PO
     Route: 048
     Dates: start: 20040625
  4. MAGNESIUM OXIDE [Suspect]
     Dosage: 2 G DAILY PO
     Route: 048
     Dates: start: 20040625
  5. BAKTAR [Suspect]
     Dates: start: 20040707
  6. PREDONINE [Suspect]
     Indication: TAKAYASU'S ARTERITIS
     Dosage: 40 MG DAILY
     Dates: end: 20040722
  7. PREDONINE [Suspect]
     Indication: TAKAYASU'S ARTERITIS
     Dosage: 35 MG DAILY
     Dates: start: 20040723, end: 20040804
  8. PREDONINE [Suspect]
     Indication: TAKAYASU'S ARTERITIS
     Dosage: 30 MG DAILY
     Dates: start: 20040805

REACTIONS (1)
  - GRANULOCYTE COUNT DECREASED [None]
